FAERS Safety Report 18551430 (Version 1)
Quarter: 2020Q4

REPORT INFORMATION
  Report Type: Report from Study
  Country: US (occurrence: US)
  Receive Date: 20201126
  Receipt Date: 20201126
  Transmission Date: 20210114
  Serious: Yes (Other)
  Sender: FDA-Public Use
  Company Number: US-TEVA-2020-US-1851297

PATIENT
  Age: 34 Year
  Sex: Female

DRUGS (1)
  1. TESTOSTERONE-CIPIONATE [Suspect]
     Active Substance: TESTOSTERONE CYPIONATE
     Indication: GENDER DYSPHORIA
     Dosage: RECEIVED FOR 36 MONTHS
     Route: 065

REACTIONS (2)
  - Vaginal disorder [Unknown]
  - Metaplasia [Unknown]
